FAERS Safety Report 4643389-0 (Version None)
Quarter: 2005Q2

REPORT INFORMATION
  Report Type: 
  Country: None (occurrence: None)
  Receive Date: 20050422
  Receipt Date: 20050408
  Transmission Date: 20051028
  Serious: Yes (Life-Threatening, Hospitalization, Disabling, Other)
  Sender: FDA-Public Use
  Company Number: 2004065552

PATIENT
  Age: 49 Year
  Sex: Male

DRUGS (13)
  1. NEURONTIN [Suspect]
     Indication: NEURALGIA
     Dosage: 300 MG (100 MG, 3 IN 1 D)
     Dates: start: 20000701
  2. NEURONTIN [Suspect]
     Indication: NEUROPATHY
     Dosage: 300 MG (100 MG, 3 IN 1 D)
     Dates: start: 20000701
  3. NEURONTIN [Suspect]
     Indication: PAIN
     Dosage: 300 MG (100 MG, 3 IN 1 D)
     Dates: start: 20000701
  4. CLONAZEPAM [Suspect]
     Indication: PAIN
     Dosage: 0.5 MG
  5. OXYCODONE HYDROCHLORIDE AND ACETAMINOPHEN [Suspect]
     Indication: PAIN
  6. VICODIN [Suspect]
     Indication: NEURALGIA
     Dosage: 60 MG, (10 MG, 1 IN 4 HR),
  7. VICODIN [Suspect]
     Indication: NEUROPATHY
     Dosage: 60 MG, (10 MG, 1 IN 4 HR),
  8. VICODIN [Suspect]
     Indication: PAIN
     Dosage: 60 MG, (10 MG, 1 IN 4 HR),
  9. PANTOPRAZOLE (PANTOPRAZOLE) [Concomitant]
  10. LATANOPROST (LANTANOPROST) [Concomitant]
  11. ESOMEPRAZOLE (ESOMEPRAZOLE) [Concomitant]
  12. GEMFIBROZIL [Concomitant]
  13. PRAVASTATIN SODIUM [Concomitant]

REACTIONS (20)
  - ABDOMINAL ABSCESS [None]
  - ABDOMINAL PAIN [None]
  - CANDIDIASIS [None]
  - COAGULOPATHY [None]
  - COLON INJURY [None]
  - DRUG INEFFECTIVE [None]
  - EMOTIONAL DISORDER [None]
  - GUN SHOT WOUND [None]
  - HAEMOTHORAX [None]
  - HYPOTENSION [None]
  - MAJOR DEPRESSION [None]
  - MEDIASTINAL HAEMORRHAGE [None]
  - OVERDOSE [None]
  - PERICARDIAL EXCISION [None]
  - POST PROCEDURAL PAIN [None]
  - POSTOPERATIVE FEVER [None]
  - SOMNOLENCE [None]
  - SPLENIC INJURY [None]
  - STAPHYLOCOCCAL ABSCESS [None]
  - SUICIDE ATTEMPT [None]
